FAERS Safety Report 8135867-7 (Version None)
Quarter: 2012Q1

REPORT INFORMATION
  Report Type: 
  Country: None (occurrence: None)
  Receive Date: 20120214
  Receipt Date: 20120124
  Transmission Date: 20120608
  Serious: Yes (Other)
  Sender: FDA-Public Use
  Company Number: JP-GLAXOSMITHKLINE-B0778136A

PATIENT
  Age: 78 Year
  Sex: Female

DRUGS (13)
  1. ZOLPIDEM [Concomitant]
     Route: 048
  2. PURSENNID [Concomitant]
     Route: 048
  3. GOODMIN [Concomitant]
     Route: 048
  4. LIPITOR [Concomitant]
     Route: 048
  5. MYONAL [Concomitant]
     Route: 048
  6. CHINESE MEDICINE [Concomitant]
     Route: 048
     Dates: start: 20120120
  7. CONIEL [Concomitant]
     Route: 048
  8. SIGMART [Concomitant]
     Route: 048
  9. DEPAS [Concomitant]
     Route: 048
  10. PAXIL [Suspect]
     Indication: DEPRESSION
     Dosage: 5MG PER DAY
     Route: 048
     Dates: start: 20120120, end: 20120126
  11. GASCON [Concomitant]
     Route: 048
  12. LANSOPRAZOLE [Concomitant]
     Route: 048
  13. ANPLAG [Concomitant]
     Route: 048

REACTIONS (1)
  - SOMNAMBULISM [None]
